FAERS Safety Report 16795587 (Version 1)
Quarter: 2019Q3

REPORT INFORMATION
  Report Type: Spontaneous
  Country: US (occurrence: US)
  Receive Date: 20190911
  Receipt Date: 20190911
  Transmission Date: 20191005
  Serious: No
  Sender: FDA-Public Use
  Company Number: US-ITALFARMACO SPA-2074282

PATIENT

DRUGS (2)
  1. TIGLUTIK [Suspect]
     Active Substance: RILUZOLE
  2. RADICAVA [Concomitant]
     Active Substance: EDARAVONE

REACTIONS (2)
  - Gastrointestinal pain [Unknown]
  - Diarrhoea [Unknown]
